FAERS Safety Report 7245501-6 (Version None)
Quarter: 2011Q1

REPORT INFORMATION
  Report Type: 
  Country: None (occurrence: None)
  Receive Date: 20110126
  Receipt Date: 20101203
  Transmission Date: 20110831
  Serious: Yes (Death, Other)
  Sender: FDA-Public Use
  Company Number: US-PURDUE-USA-2010-0056983

PATIENT
  Sex: Male

DRUGS (1)
  1. OXYCONTIN [Suspect]
     Indication: SURGERY
     Dosage: UNK
     Dates: start: 19990119

REACTIONS (5)
  - DRUG DEPENDENCE [None]
  - NAUSEA [None]
  - DEATH [None]
  - SUICIDE ATTEMPT [None]
  - MOOD SWINGS [None]
